FAERS Safety Report 4317198-6 (Version None)
Quarter: 2004Q1

REPORT INFORMATION
  Report Type: 
  Country: None (occurrence: None)
  Receive Date: 20040312
  Receipt Date: 20040309
  Transmission Date: 20041129
  Serious: Yes (Hospitalization)
  Sender: FDA-Public Use
  Company Number: 200403060

PATIENT
  Age: 79 Year
  Sex: Female

DRUGS (6)
  1. MOTRIN IB [Suspect]
     Dosage: PRN
     Dates: start: 20040208, end: 20040218
  2. EXTRA STRENGTH TYLENOL PRODUCTS (ACETAMINOPHEN 500 MG) [Concomitant]
  3. BUFFERIN (BUFFERED ASPIRIN) [Concomitant]
  4. CELEBREX [Concomitant]
  5. BEXTRA [Concomitant]
  6. GLUCOSAMINE/CHONDROITIN [Concomitant]

REACTIONS (1)
  - CELLULITIS [None]
